FAERS Safety Report 13909425 (Version 1)
Quarter: 2017Q3

REPORT INFORMATION
  Report Type: Report from Study
  Country: None (occurrence: US)
  Receive Date: 20170828
  Receipt Date: 20170828
  Transmission Date: 20171127
  Serious: Yes (Hospitalization)
  Sender: FDA-Public Use
  Company Number: US-ABBVIE-17K-163-1987438-00

PATIENT
  Age: 32 Year
  Sex: Female

DRUGS (1)
  1. HUMIRA [Suspect]
     Active Substance: ADALIMUMAB
     Indication: COLITIS ULCERATIVE
     Route: 058
     Dates: start: 20170223, end: 20170406

REACTIONS (8)
  - Cellulitis [Recovering/Resolving]
  - Gait inability [Recovering/Resolving]
  - Anxiety [Not Recovered/Not Resolved]
  - Pyomyositis [Recovering/Resolving]
  - Dysstasia [Not Recovered/Not Resolved]
  - Hypophagia [Recovering/Resolving]
  - General physical health deterioration [Not Recovered/Not Resolved]
  - Depression [Not Recovered/Not Resolved]

NARRATIVE: CASE EVENT DATE: 2017
